FAERS Safety Report 8377561-3 (Version None)
Quarter: 2012Q2

REPORT INFORMATION
  Report Type: 
  Country: None (occurrence: None)
  Receive Date: 20120522
  Receipt Date: 20120515
  Transmission Date: 20120825
  Serious: Yes (Hospitalization, Other)
  Sender: FDA-Public Use
  Company Number: JP-PFIZER INC-2012107083

PATIENT
  Age: 19 Month
  Sex: Male

DRUGS (1)
  1. TOLTERODINE TARTRATE [Suspect]
     Dosage: 4 MG, UNK
     Route: 048
     Dates: start: 20120501

REACTIONS (4)
  - TACHYCARDIA [None]
  - ACCIDENTAL DRUG INTAKE BY CHILD [None]
  - FLUSHING [None]
  - PYREXIA [None]
